FAERS Safety Report 23797135 (Version 1)
Quarter: 2024Q2

REPORT INFORMATION
  Report Type: Spontaneous
  Country: CL (occurrence: CL)
  Receive Date: 20240430
  Receipt Date: 20240430
  Transmission Date: 20240716
  Serious: Yes (Death, Other)
  Sender: FDA-Public Use
  Company Number: CL-VANTIVE-2024BAX015166

PATIENT
  Age: 84 Year
  Sex: Male
  Weight: 50 kg

DRUGS (9)
  1. DIANEAL PD-2 WITH DEXTROSE [Suspect]
     Active Substance: CALCIUM CHLORIDE\DEXTROSE\MAGNESIUM CHLORIDE\SODIUM CHLORIDE\SODIUM LACTATE
     Indication: Peritoneal dialysis
     Dosage: 1 BAG PER DAY
     Route: 033
     Dates: start: 201707
  2. FUROSEMIDE [Concomitant]
     Active Substance: FUROSEMIDE
     Dosage: 2 TABLETS EVERY 12 HOURS
     Route: 048
  3. ALLOPURINOL [Concomitant]
     Active Substance: ALLOPURINOL
     Dosage: 300 MG DAILY
     Route: 065
  4. AMLODIPINE [Concomitant]
     Active Substance: AMLODIPINE BESYLATE
     Dosage: 10 MG DAILY
     Route: 065
  5. VENOFER [Concomitant]
     Active Substance: IRON SUCROSE
     Dosage: 1 PER MONTH
     Route: 065
  6. ERYTHROPOIETIN [Concomitant]
     Active Substance: ERYTHROPOIETIN
     Dosage: 4000 IU EVERY 15 DAYS
     Route: 065
  7. PHOSLO [Concomitant]
     Active Substance: CALCIUM ACETATE
     Dosage: 1 WITH LUNCH
     Route: 065
  8. VITAMIN B COMPLEX [Concomitant]
     Active Substance: CYANOCOBALAMIN\DEXPANTHENOL\NIACINAMIDE\PYRIDOXINE HYDROCHLORIDE\RIBOFLAVIN 5^-PHOSPHATE SODIUM\THIA
     Dosage: 1 PER MONTH
     Route: 065
  9. ALPRAZOLAM [Concomitant]
     Active Substance: ALPRAZOLAM
     Dosage: 0.5 MG PER NIGHT
     Route: 065

REACTIONS (1)
  - Pleural mesothelioma [Fatal]

NARRATIVE: CASE EVENT DATE: 20240314
